FAERS Safety Report 7792292-6 (Version None)
Quarter: 2011Q4

REPORT INFORMATION
  Report Type: 
  Country: None (occurrence: None)
  Receive Date: 20111003
  Receipt Date: 20110923
  Transmission Date: 20120403
  Serious: Yes (Other)
  Sender: FDA-Public Use
  Company Number: PHHY2010CA83319

PATIENT
  Sex: Female

DRUGS (1)
  1. ZOLEDRONOC ACID [Suspect]
     Indication: OSTEOPOROSIS
     Dosage: 5 MG, UNK
     Route: 042
     Dates: start: 20101124

REACTIONS (5)
  - MYALGIA [None]
  - PRURITUS [None]
  - TOOTH FRACTURE [None]
  - PELVIC FRACTURE [None]
  - MUSCLE SPASMS [None]
